FAERS Safety Report 8769446 (Version 1)
Quarter: 2012Q4

REPORT INFORMATION
  Report Type: Report from Study
  Country: JP (occurrence: JP)
  Receive Date: 20120905
  Receipt Date: 20120905
  Transmission Date: 20130627
  Serious: Yes (Other)
  Sender: FDA-Public Use
  Company Number: JP-VERTEX PHARMACEUTICAL INC.-AE-2012-002914

PATIENT
  Age: 59 Year
  Sex: Male

DRUGS (10)
  1. VX-950 [Suspect]
     Indication: HEPATITIS C
     Dosage: 1500 mg, UNK
     Route: 048
     Dates: start: 20120221, end: 20120224
  2. PEGINTERFERON ALFA-2B [Concomitant]
     Dosage: 1.5 ?g/kg, UNK
     Route: 058
     Dates: start: 20120221
  3. REBETOL [Suspect]
     Indication: HEPATITIS C
     Dosage: 600 mg, qd
     Route: 048
     Dates: start: 20120221
  4. REBETOL [Suspect]
     Dosage: 800 UNK, UNK
     Route: 048
  5. REBETOL [Suspect]
     Dosage: 600 mg, qd
     Route: 048
     Dates: end: 20120604
  6. REBETOL [Suspect]
     Dosage: 400 mg, qd
     Route: 048
     Dates: start: 20120605
  7. NEXIUM                             /01479302/ [Concomitant]
     Dosage: 20 mg, UNK
     Route: 048
     Dates: start: 20120605
  8. MYSLEE [Concomitant]
     Dosage: 5 mg, qd
     Route: 048
     Dates: start: 20120605
  9. LOXOPROFEN [Concomitant]
     Route: 048
  10. REBAMIPIDE OD [Concomitant]
     Route: 048

REACTIONS (1)
  - Toxic skin eruption [Recovered/Resolved]
